FAERS Safety Report 5367758-9 (Version None)
Quarter: 2007Q2

REPORT INFORMATION
  Report Type: 
  Country: None (occurrence: None)
  Receive Date: 20070622
  Receipt Date: 20070402
  Transmission Date: 20071010
  Serious: No
  Sender: FDA-Public Use
  Company Number: US-ASTRAZENECA-2007UW06581

PATIENT
  Age: 4 Year
  Sex: Female

DRUGS (3)
  1. PULMICORT RESPULES [Suspect]
     Indication: RESPIRATORY TRACT INFECTION
     Route: 055
     Dates: start: 20061201
  2. PULMICORT RESPULES [Suspect]
     Dosage: .5 MG/2ML BID X 5 DAYS
     Route: 055
  3. XOPENEX [Concomitant]

REACTIONS (2)
  - CONSTIPATION [None]
  - FATIGUE [None]
